FAERS Safety Report 13095689 (Version 2)
Quarter: 2018Q1

REPORT INFORMATION
  Report Type: Report from Study
  Country: GB (occurrence: GB)
  Receive Date: 20170109
  Receipt Date: 20180321
  Transmission Date: 20180508
  Serious: Yes (Death, Other)
  Sender: FDA-Public Use
  Company Number: GB-AMGEN-GBRNI2017000998

PATIENT
  Age: 83 Year
  Sex: Female

DRUGS (1)
  1. ETANERCEPT [Suspect]
     Active Substance: ETANERCEPT
     Indication: RHEUMATOID ARTHRITIS
     Dosage: 25 MG, UNK
     Route: 065
     Dates: start: 20100315, end: 20111202

REACTIONS (1)
  - Rheumatoid arthritis [Fatal]

NARRATIVE: CASE EVENT DATE: 20151230
